FAERS Safety Report 6967847-9 (Version None)
Quarter: 2010Q3

REPORT INFORMATION
  Report Type: 
  Country: None (occurrence: None)
  Receive Date: 20100907
  Receipt Date: 20100301
  Transmission Date: 20110219
  Serious: No
  Sender: FDA-Public Use
  Company Number: A0847352A

PATIENT
  Age: 57 Year
  Sex: Female

DRUGS (9)
  1. REQUIP [Suspect]
     Indication: RESTLESS LEGS SYNDROME
     Dosage: 1MG THREE TIMES PER DAY
     Route: 048
     Dates: start: 20060101
  2. TRACLEER [Concomitant]
  3. NORVASC [Concomitant]
  4. TEKTURNA [Concomitant]
  5. PREMARIN [Concomitant]
  6. AMBIEN [Concomitant]
  7. EFFEXOR [Concomitant]
  8. FIBER PILL [Concomitant]
  9. CALCIUM [Concomitant]

REACTIONS (1)
  - DRUG INEFFECTIVE [None]
